FAERS Safety Report 7226899-1 (Version None)
Quarter: 2011Q1

REPORT INFORMATION
  Report Type: 
  Country: None (occurrence: None)
  Receive Date: 20110114
  Receipt Date: 20101222
  Transmission Date: 20110831
  Serious: No
  Sender: FDA-Public Use
  Company Number: US-B.I. PHARMACEUTICALS,INC./RIDGEFIELD-2010-BP-15325BP

PATIENT
  Sex: Female

DRUGS (8)
  1. PRADAXA [Suspect]
     Dosage: 300 MG
     Route: 048
     Dates: start: 20101216
  2. LISINOPRIL [Concomitant]
     Dosage: 20 MG
  3. COREG [Concomitant]
     Dosage: 40 MG
  4. ZETIA [Concomitant]
     Dosage: 10 MG
  5. FENOFIBRATE [Concomitant]
     Dosage: 160 MG
  6. LIPITOR [Concomitant]
     Dosage: 80 MG
  7. DIGOXIN [Concomitant]
     Dosage: 0.25 MG
  8. LOVAZA [Concomitant]

REACTIONS (1)
  - INTERNATIONAL NORMALISED RATIO INCREASED [None]
